FAERS Safety Report 17795052 (Version 2)
Quarter: 2020Q2

REPORT INFORMATION
  Report Type: Spontaneous
  Country: CZ (occurrence: CZ)
  Receive Date: 20200515
  Receipt Date: 20200618
  Transmission Date: 20200714
  Serious: Yes (Other)
  Sender: FDA-Public Use
  Company Number: NVSC2020CZ129773

PATIENT
  Age: 70 Year
  Sex: Female

DRUGS (1)
  1. DOXORUBICIN [Suspect]
     Active Substance: DOXORUBICIN
     Indication: UTERINE LEIOMYOSARCOMA
     Dosage: 6 UNK, CYCLIC
     Route: 065
     Dates: start: 2018, end: 2018

REACTIONS (9)
  - Metastases to lung [Unknown]
  - Metastases to kidney [Unknown]
  - Malignant neoplasm progression [Unknown]
  - Metastases to liver [Unknown]
  - Treatment failure [Unknown]
  - Metastases to pancreas [Unknown]
  - Uterine leiomyosarcoma [Unknown]
  - Product use in unapproved indication [Unknown]
  - Spinal pain [Unknown]

NARRATIVE: CASE EVENT DATE: 201802
